FAERS Safety Report 6044177-3 (Version None)
Quarter: 2009Q1

REPORT INFORMATION
  Report Type: 
  Country: None (occurrence: None)
  Receive Date: 20090120
  Receipt Date: 20090115
  Transmission Date: 20090719
  Serious: Yes (Death)
  Sender: FDA-Public Use
  Company Number: FR-ASTRAZENECA-2009CG00154

PATIENT
  Age: 30122 Day
  Sex: Female

DRUGS (12)
  1. CRESTOR [Suspect]
     Indication: PROPHYLAXIS
     Route: 048
  2. OMEPRAZOLE [Suspect]
     Route: 048
  3. TRIATEC [Suspect]
     Indication: ISCHAEMIC CARDIOMYOPATHY
     Route: 048
  4. KARDEGIC [Suspect]
     Indication: PROPHYLAXIS
     Route: 048
  5. IKOREL [Suspect]
     Indication: CORONARY ARTERY INSUFFICIENCY
     Route: 048
  6. CARDENSIEL [Suspect]
     Indication: ISCHAEMIC CARDIOMYOPATHY
     Route: 048
  7. FUROSEMIDE [Suspect]
     Indication: ISCHAEMIC CARDIOMYOPATHY
     Route: 048
  8. LEVOTHYROX [Suspect]
     Route: 048
  9. ROCEPHIN [Suspect]
     Indication: LUNG INFECTION
     Route: 030
     Dates: start: 20071225
  10. MEDROL [Suspect]
     Indication: BRONCHITIS
     Route: 048
     Dates: start: 20071223, end: 20071228
  11. EXOMUC [Concomitant]
     Dates: end: 20081201
  12. VENTOLIN [Concomitant]
     Dates: end: 20081201

REACTIONS (5)
  - DERMATITIS BULLOUS [None]
  - DYSPNOEA [None]
  - GENERALISED ERYTHEMA [None]
  - HYPOTHERMIA [None]
  - OEDEMA [None]
